FAERS Safety Report 25124859 (Version 1)
Quarter: 2025Q1

REPORT INFORMATION
  Report Type: Spontaneous
  Country: US (occurrence: US)
  Receive Date: 20250326
  Receipt Date: 20250326
  Transmission Date: 20250408
  Serious: No
  Sender: GRANULES PHARMACEUTICALS INC
  Company Number: US-GRANULES-US-2025GRASPO00127

PATIENT
  Age: 84 Year
  Sex: Female
  Weight: 83 kg

DRUGS (2)
  1. FEXOFENADINE HYDROCHLORIDE [Suspect]
     Active Substance: FEXOFENADINE HYDROCHLORIDE
     Indication: Urticaria
     Dosage: 01 TABLET ON SUNDAY AND 01 TABLET ON MONDAY
     Route: 048
     Dates: start: 20250309
  2. DIPHENHYDRAMINE [Concomitant]
     Active Substance: DIPHENHYDRAMINE
     Indication: Product used for unknown indication
     Route: 065

REACTIONS (3)
  - Urticaria [Unknown]
  - Condition aggravated [Unknown]
  - Drug ineffective [Unknown]
